FAERS Safety Report 13727823 (Version 1)
Quarter: 2017Q3

REPORT INFORMATION
  Report Type: Report from Study
  Country: JP (occurrence: JP)
  Receive Date: 20170707
  Receipt Date: 20170707
  Transmission Date: 20171127
  Serious: Yes (Life-Threatening, Other)
  Sender: FDA-Public Use
  Company Number: JP-ACCORD-049665

PATIENT
  Age: 28 Year
  Sex: Female

DRUGS (3)
  1. CISPLATIN. [Suspect]
     Active Substance: CISPLATIN
     Indication: OVARIAN CANCER
  2. ETOPOSIDE. [Suspect]
     Active Substance: ETOPOSIDE
     Indication: OVARIAN CANCER
  3. BLEOMYCIN [Suspect]
     Active Substance: BLEOMYCIN SULFATE
     Indication: OVARIAN CANCER
     Dosage: TREATMENT WAS CONTINUED EVERY 21 DAYS

REACTIONS (7)
  - Nausea [Unknown]
  - Febrile neutropenia [Recovering/Resolving]
  - Alopecia [Unknown]
  - Bone marrow failure [Unknown]
  - Vomiting [Unknown]
  - Nail discolouration [Unknown]
  - Thrombocytopenia [Unknown]
